FAERS Safety Report 7138022-2 (Version None)
Quarter: 2010Q4

REPORT INFORMATION
  Report Type: 
  Country: None (occurrence: None)
  Receive Date: 20101118
  Receipt Date: 20101112
  Transmission Date: 20110411
  Serious: Yes (Disabling)
  Sender: FDA-Public Use
  Company Number: OSCN-NO-0903L-0176

PATIENT
  Age: 65 Year
  Sex: Female

DRUGS (9)
  1. OMNISCAN [Suspect]
     Indication: HAEMORRHAGE
     Dosage: SINGLE DOSE, I.V.
     Route: 042
     Dates: start: 20030307, end: 20030307
  2. OMNISCAN [Suspect]
     Indication: THROMBOSIS
     Dosage: SINGLE DOSE, I.V.
     Route: 042
     Dates: start: 20030307, end: 20030307
  3. OMNISCAN [Suspect]
     Indication: HAEMORRHAGE
     Dosage: SINGLE DOSE, I.V.
     Route: 042
     Dates: start: 20030320, end: 20030320
  4. OMNISCAN [Suspect]
     Indication: THROMBOSIS
     Dosage: SINGLE DOSE, I.V.
     Route: 042
     Dates: start: 20030320, end: 20030320
  5. ANTIBIOTICS [Concomitant]
  6. LOW MOLECULAR WEIGHT HEPARIN [Concomitant]
  7. CORTICOSTEROIDS [Concomitant]
  8. AMIODARONE [Concomitant]
  9. DIGOXIN [Concomitant]

REACTIONS (6)
  - ATRIAL FIBRILLATION [None]
  - DIVERTICULAR PERFORATION [None]
  - DIVERTICULUM INTESTINAL [None]
  - PULMONARY HAEMORRHAGE [None]
  - RENAL IMPAIRMENT [None]
  - SEPSIS [None]
